FAERS Safety Report 7080762-8 (Version None)
Quarter: 2010Q4

REPORT INFORMATION
  Report Type: 
  Country: None (occurrence: None)
  Receive Date: 20101103
  Receipt Date: 20101021
  Transmission Date: 20110411
  Serious: Yes (Death, Hospitalization)
  Sender: FDA-Public Use
  Company Number: US-ACTELION-A-US2010-40408

PATIENT
  Sex: Female

DRUGS (16)
  1. BOSENTAN TABLET 125 MG US [Suspect]
     Indication: PULMONARY ARTERIAL HYPERTENSION
     Dosage: 125 MG, BID
     Route: 048
     Dates: start: 20080613, end: 20100914
  2. TOPROL-XL [Concomitant]
  3. LASIX [Concomitant]
  4. VALIUM [Concomitant]
  5. AMBIEN [Concomitant]
  6. COUMADIN [Concomitant]
  7. PROTONIX [Concomitant]
  8. ALLOPURINOL [Concomitant]
  9. SIMVASTATIN [Concomitant]
  10. RENAGEL [Concomitant]
  11. FERROUS GLUCONATE [Concomitant]
  12. FOLIC ACID [Concomitant]
  13. ZOLOFT [Concomitant]
  14. ALBUTEROL [Concomitant]
  15. SPIRIVA [Concomitant]
  16. ADVAIR DISKUS 100/50 [Concomitant]

REACTIONS (12)
  - ANAEMIA [None]
  - COAGULOPATHY [None]
  - DEATH [None]
  - ENDOVENOUS ABLATION [None]
  - HAEMATOMA [None]
  - HYPERTENSION [None]
  - MUSCULOSKELETAL PAIN [None]
  - PAIN IN EXTREMITY [None]
  - POST PROCEDURAL HAEMORRHAGE [None]
  - RENAL FAILURE ACUTE [None]
  - SEPSIS [None]
  - SEPTIC SHOCK [None]
